FAERS Safety Report 6851924-7 (Version None)
Quarter: 2010Q3

REPORT INFORMATION
  Report Type: 
  Country: None (occurrence: None)
  Receive Date: 20100717
  Receipt Date: 20071101
  Transmission Date: 20110219
  Serious: No
  Sender: FDA-Public Use
  Company Number: US-PFIZER INC-2007093651

PATIENT
  Sex: Female
  Weight: 61.8 kg

DRUGS (5)
  1. CHANTIX [Suspect]
     Indication: SMOKING CESSATION THERAPY
     Dates: start: 20071022
  2. COZAAR [Concomitant]
  3. CRESTOR [Concomitant]
  4. EVISTA [Concomitant]
  5. ZOLOFT [Concomitant]

REACTIONS (7)
  - DECREASED APPETITE [None]
  - HEADACHE [None]
  - INSOMNIA [None]
  - NAUSEA [None]
  - POLLAKIURIA [None]
  - SOMNOLENCE [None]
  - VOMITING [None]
